FAERS Safety Report 23606751 (Version 1)
Quarter: 2024Q1

REPORT INFORMATION
  Report Type: Spontaneous
  Country: NL (occurrence: NL)
  Receive Date: 20240307
  Receipt Date: 20240307
  Transmission Date: 20240410
  Serious: Yes (Hospitalization)
  Sender: FDA-Public Use
  Company Number: NL-AMGEN-NLDNI2024042278

PATIENT
  Age: 65 Year
  Sex: Male

DRUGS (5)
  1. BEVACIZUMAB [Suspect]
     Active Substance: BEVACIZUMAB
     Indication: Non-small cell lung cancer stage IV
     Dosage: 7550 MILLIGRAM (DATE OF LAST ADMINISTRATION: 01/FEB/2024)
     Route: 042
     Dates: start: 20231002
  2. BEVACIZUMAB [Suspect]
     Active Substance: BEVACIZUMAB
     Dosage: UNK
     Route: 042
  3. ATEZOLIZUMAB [Suspect]
     Active Substance: ATEZOLIZUMAB
     Indication: Non-small cell lung cancer stage IV
     Dosage: 6000 MILLIGRAM (DATE OF LAST ADMINISTRATION 01/FEB/2024)
     Route: 042
     Dates: start: 20231002
  4. PACLITAXEL [Suspect]
     Active Substance: PACLITAXEL
     Indication: Non-small cell lung cancer stage IV
     Dosage: 1572 MILLIGRAM (DATE OF LAST ADMINISTRATION: 11-DEC-2023)
     Route: 042
     Dates: start: 20231002
  5. CARBOPLATIN [Suspect]
     Active Substance: CARBOPLATIN
     Indication: Non-small cell lung cancer stage IV
     Dosage: 2340 MILLIGRAM (DATE OF LAST ADMINISTARTION: 11/DEC/2023)
     Route: 042
     Dates: start: 20231002

REACTIONS (2)
  - Aphasia [Recovered/Resolved]
  - Non-small cell lung cancer metastatic [Recovered/Resolved]

NARRATIVE: CASE EVENT DATE: 20240114
